FAERS Safety Report 5929763-0 (Version None)
Quarter: 2008Q4

REPORT INFORMATION
  Report Type: 
  Country: None (occurrence: None)
  Receive Date: 20081021
  Receipt Date: 20081009
  Transmission Date: 20090506
  Serious: Yes (Hospitalization)
  Sender: FDA-Public Use
  Company Number: 2008BI021659

PATIENT
  Age: 52 Year
  Sex: Female
  Weight: 72.5755 kg

DRUGS (4)
  1. AVONEX [Suspect]
     Indication: MULTIPLE SCLEROSIS
     Dosage: 30 UG;QW;IM
     Route: 030
     Dates: start: 20010720, end: 20080101
  2. AVONEX [Suspect]
     Indication: MULTIPLE SCLEROSIS
     Dosage: 30 UG;QW;IM
     Route: 030
     Dates: start: 20080616
  3. . [Concomitant]
  4. TYSABRI [Concomitant]

REACTIONS (6)
  - ASTHENIA [None]
  - CHONDROPATHY [None]
  - DRUG INEFFECTIVE [None]
  - FALL [None]
  - REFLEXES ABNORMAL [None]
  - VEIN DISORDER [None]
